FAERS Safety Report 8111014-2 (Version None)
Quarter: 2012Q1

REPORT INFORMATION
  Report Type: 
  Country: None (occurrence: None)
  Receive Date: 20120203
  Receipt Date: 20110215
  Transmission Date: 20120608
  Serious: No
  Sender: FDA-Public Use
  Company Number: US-GLAXOSMITHKLINE-A0913766A

PATIENT
  Age: 45 Year
  Sex: Female

DRUGS (3)
  1. LAMICTAL [Suspect]
     Indication: BIPOLAR DISORDER
     Dosage: 150TAB THREE TIMES PER DAY
     Route: 048
     Dates: start: 20060806
  2. ANTIBIOTICS [Suspect]
     Indication: TOOTH ABSCESS
     Route: 065
  3. KLONOPIN [Concomitant]

REACTIONS (5)
  - DECREASED APPETITE [None]
  - DISSOCIATION [None]
  - SOCIAL AVOIDANT BEHAVIOUR [None]
  - DEPRESSION [None]
  - NAUSEA [None]
